FAERS Safety Report 8470813-8 (Version None)
Quarter: 2012Q2

REPORT INFORMATION
  Report Type: 
  Country: None (occurrence: None)
  Receive Date: 20120627
  Receipt Date: 20120611
  Transmission Date: 20120825
  Serious: No
  Sender: FDA-Public Use
  Company Number: US-JNJFOC-20120606976

PATIENT
  Sex: Male

DRUGS (1)
  1. INVEGA SUSTENNA [Suspect]
     Indication: PRODUCT USED FOR UNKNOWN INDICATION
     Route: 030

REACTIONS (5)
  - DEVICE MALFUNCTION [None]
  - UNDERDOSE [None]
  - EXPOSURE VIA DIRECT CONTACT [None]
  - NEEDLE ISSUE [None]
  - DEVICE LEAKAGE [None]
